FAERS Safety Report 5312239-1 (Version None)
Quarter: 2007Q2

REPORT INFORMATION
  Report Type: 
  Country: None (occurrence: None)
  Receive Date: 20070430
  Receipt Date: 20060925
  Transmission Date: 20071010
  Serious: No
  Sender: FDA-Public Use
  Company Number: 2006UW18643

PATIENT
  Age: 69 Year
  Sex: Female
  Weight: 49.9 kg

DRUGS (6)
  1. NEXIUM [Suspect]
     Indication: REFLUX OESOPHAGITIS
     Route: 048
     Dates: end: 20060901
  2. NEXIUM [Suspect]
     Route: 048
     Dates: start: 20060901
  3. NORVASC [Concomitant]
  4. ALLEGRA [Concomitant]
  5. CHLORTHALIDONE [Concomitant]
  6. FEMHART [Concomitant]

REACTIONS (4)
  - DRUG EFFECT DECREASED [None]
  - DYSPHONIA [None]
  - PRURITUS [None]
  - SWELLING FACE [None]
